FAERS Safety Report 17559106 (Version 5)
Quarter: 2020Q3

REPORT INFORMATION
  Report Type: Report from Study
  Country: US (occurrence: US)
  Receive Date: 20200319
  Receipt Date: 20200706
  Transmission Date: 20201102
  Serious: Yes (Other)
  Sender: FDA-Public Use
  Company Number: NVSC2020US078655

PATIENT
  Age: 53 Year
  Sex: Female

DRUGS (1)
  1. MAYZENT [Suspect]
     Active Substance: SIPONIMOD
     Indication: SECONDARY PROGRESSIVE MULTIPLE SCLEROSIS
     Dosage: 2 MG, QD
     Route: 048
     Dates: start: 20200317, end: 20200317

REACTIONS (15)
  - Pain [Unknown]
  - Fatigue [Unknown]
  - Cognitive disorder [Unknown]
  - Alopecia [Unknown]
  - Nausea [Recovered/Resolved]
  - Somnolence [Unknown]
  - Medial tibial stress syndrome [Unknown]
  - Dizziness [Unknown]
  - Fall [Unknown]
  - Feeling abnormal [Unknown]
  - Impaired healing [Unknown]
  - Tremor [Unknown]
  - Speech disorder [Recovered/Resolved]
  - Gait disturbance [Unknown]
  - Dizziness [Recovered/Resolved]

NARRATIVE: CASE EVENT DATE: 20200317
